FAERS Safety Report 6176688-4 (Version None)
Quarter: 2009Q2

REPORT INFORMATION
  Report Type: 
  Country: None (occurrence: None)
  Receive Date: 20090501
  Receipt Date: 20080205
  Transmission Date: 20091009
  Serious: Yes (Death, Other)
  Sender: FDA-Public Use
  Company Number: FR-ALEXION-A200700122

PATIENT

DRUGS (7)
  1. SOLIRIS [Suspect]
     Indication: PAROXYSMAL NOCTURNAL HAEMOGLOBINURIA
     Dosage: UNK, SINGLE
     Route: 042
     Dates: start: 20071031, end: 20071031
  2. SOLIRIS [Suspect]
     Dosage: 600 MG, SINGLE
     Route: 042
     Dates: start: 20071101, end: 20071101
  3. SOLIRIS [Suspect]
     Dosage: UNK, SINGLE
     Dates: start: 20070101, end: 20070101
  4. SOLIRIS [Suspect]
     Dosage: UNK, SINGLE
     Route: 042
     Dates: start: 20071211, end: 20071211
  5. SOLIRIS [Suspect]
     Dosage: UNK, SINGLE
     Route: 042
     Dates: start: 20071231, end: 20071231
  6. SANDOSTATINE /00821001/ [Concomitant]
     Indication: GASTROINTESTINAL HAEMORRHAGE
     Dosage: 25 Y/HR
     Route: 042
  7. INIPOMP [Concomitant]
     Indication: GASTROINTESTINAL HAEMORRHAGE
     Dosage: 40 MG, UNK
     Route: 042

REACTIONS (3)
  - BLOOD CREATININE INCREASED [None]
  - DEATH [None]
  - OESOPHAGEAL VARICES HAEMORRHAGE [None]
